FAERS Safety Report 10701866 (Version 2)
Quarter: 2015Q2

REPORT INFORMATION
  Report Type: Spontaneous
  Country: US (occurrence: US)
  Receive Date: 20150109
  Receipt Date: 20150626
  Transmission Date: 20150821
  Serious: No
  Sender: FDA-Public Use
  Company Number: US-GLAXOSMITHKLINE-US2014GSK044943

PATIENT
  Age: 73 Year
  Sex: Male

DRUGS (5)
  1. PAROXETINE [Concomitant]
     Active Substance: PAROXETINE\PAROXETINE HYDROCHLORIDE
  2. FINASTERIDE. [Concomitant]
     Active Substance: FINASTERIDE
  3. EPIVIR HBV [Suspect]
     Active Substance: LAMIVUDINE
     Indication: LIVER TRANSPLANT
  4. DOXYCYCLINE. [Concomitant]
     Active Substance: DOXYCYCLINE
  5. EPIVIR HBV [Suspect]
     Active Substance: LAMIVUDINE
     Indication: HEPATITIS
     Dosage: 100 MG, QD
     Dates: start: 1994

REACTIONS (1)
  - Cataract [Not Recovered/Not Resolved]

NARRATIVE: CASE EVENT DATE: 201408
